FAERS Safety Report 8396959-0 (Version None)
Quarter: 2012Q2

REPORT INFORMATION
  Report Type: 
  Country: None (occurrence: None)
  Receive Date: 20120530
  Receipt Date: 20120523
  Transmission Date: 20120825
  Serious: Yes (Other)
  Sender: FDA-Public Use
  Company Number: US-PFIZER INC-2012086392

PATIENT
  Sex: Female

DRUGS (11)
  1. PRAVACHOL [Concomitant]
  2. ALLOPURINOL [Concomitant]
     Dosage: 300 MG, UNK
  3. CYMBALTA [Concomitant]
     Dosage: 120 MG, UNK
  4. SYNTHROID [Concomitant]
     Dosage: 120 UG, UNK
  5. LISINOPRIL [Concomitant]
     Dosage: 20/25
  6. PREVACID [Concomitant]
     Dosage: 30 MG, UNK
  7. MIRALAX [Concomitant]
  8. NEURONTIN [Suspect]
     Dosage: 1200 MG, 3X/DAY
     Dates: start: 20040401
  9. TOPAMAX [Concomitant]
     Dosage: 20 MG, UNK
  10. FISH OIL [Concomitant]
  11. LASIX [Concomitant]
     Dosage: 80 MG, UNK

REACTIONS (4)
  - ASTHENIA [None]
  - HYPOAESTHESIA [None]
  - TRANSIENT ISCHAEMIC ATTACK [None]
  - DYSPNOEA [None]
